FAERS Safety Report 26167538 (Version 1)
Quarter: 2025Q4

REPORT INFORMATION
  Report Type: Report from Study
  Country: US (occurrence: US)
  Receive Date: 20251217
  Receipt Date: 20251217
  Transmission Date: 20260117
  Serious: Yes (Other)
  Sender: ABBVIE
  Company Number: US-ABBVIE-6589391

PATIENT
  Age: 70 Year
  Sex: Male

DRUGS (1)
  1. CREON [Suspect]
     Active Substance: PANCRELIPASE AMYLASE\PANCRELIPASE LIPASE\PANCRELIPASE PROTEASE
     Indication: Pancreatic failure
     Route: 048
     Dates: start: 20240501

REACTIONS (10)
  - Sepsis [Unknown]
  - Rib fracture [Recovered/Resolved]
  - Staphylococcal infection [Recovered/Resolved with Sequelae]
  - Product administration error [Unknown]
  - Clostridium difficile infection [Recovered/Resolved with Sequelae]
  - Flatulence [Unknown]
  - Diarrhoea [Unknown]
  - Pain [Recovered/Resolved with Sequelae]
  - Pain [Recovered/Resolved with Sequelae]
  - Fall [Recovered/Resolved]

NARRATIVE: CASE EVENT DATE: 20250101
